FAERS Safety Report 7964129-3 (Version None)
Quarter: 2011Q4

REPORT INFORMATION
  Report Type: 
  Country: None (occurrence: None)
  Receive Date: 20111121
  Receipt Date: 20110912
  Transmission Date: 20120403
  Serious: No
  Sender: FDA-Public Use
  Company Number: 1000023784

PATIENT
  Age: 58 Year
  Sex: Female

DRUGS (8)
  1. CRESTOR [Concomitant]
  2. TEKTURNA (ALISKIREN FUMARATE)(ALISKIREN FUMARATE) [Concomitant]
  3. ADVAIR (SERETIDE)(SERETIDE) [Concomitant]
  4. VIIBRYD [Suspect]
     Indication: ANXIETY
     Dosage: 10 MG (10 MG, 1 IN 1 D),ORAL, 20 MG (20 MG, 1 IN 1 D),ORAL, 40 MG (40 MG, 1 IN 1 D),ORAL
     Route: 048
     Dates: start: 20110101, end: 20110801
  5. VIIBRYD [Suspect]
     Indication: ANXIETY
     Dosage: 10 MG (10 MG, 1 IN 1 D),ORAL, 20 MG (20 MG, 1 IN 1 D),ORAL, 40 MG (40 MG, 1 IN 1 D),ORAL
     Route: 048
     Dates: start: 20110808
  6. VIIBRYD [Suspect]
     Indication: ANXIETY
     Dosage: 10 MG (10 MG, 1 IN 1 D),ORAL, 20 MG (20 MG, 1 IN 1 D),ORAL, 40 MG (40 MG, 1 IN 1 D),ORAL
     Route: 048
     Dates: start: 20110701, end: 20110101
  7. DEXILANT (DEXLANSOPRAZOLE)(DEXLANSOPRAZOLE) [Concomitant]
  8. VAGIFEM( ESTRADIOL)(ESTRADIOL) [Concomitant]

REACTIONS (9)
  - PETECHIAE [None]
  - HALLUCINATION [None]
  - PALPITATIONS [None]
  - RHINORRHOEA [None]
  - CHEST PAIN [None]
  - STOMATITIS [None]
  - DIARRHOEA [None]
  - FLATULENCE [None]
  - PSORIASIS [None]
